FAERS Safety Report 17708270 (Version 1)
Quarter: 2020Q2

REPORT INFORMATION
  Report Type: Report from Study
  Country: CN (occurrence: CN)
  Receive Date: 20200426
  Receipt Date: 20200426
  Transmission Date: 20200714
  Serious: Yes (Other)
  Sender: FDA-Public Use
  Company Number: CN-ROCHE-2588834

PATIENT

DRUGS (2)
  1. TS-1 [Suspect]
     Active Substance: GIMERACIL\OTERACIL\TEGAFUR
     Indication: GASTRIC CANCER
     Dosage: AFTER 2 WEEKS OF CONTINUOUS TREATMENT, THE DRUG WAS STOPPED FOR 1 WEEK, AND 3 WEEK WAS A TREATMENT C
     Route: 048
  2. CAPECITABINE. [Suspect]
     Active Substance: CAPECITABINE
     Indication: GASTRIC CANCER
     Dosage: STOP FOR 1 WEEK AFTER TWO WEEKS OF TREATMENT AND THEN START IN 3RD WEEK.
     Route: 048

REACTIONS (13)
  - Nausea [Unknown]
  - Rash [Unknown]
  - Abdominal pain [Unknown]
  - Granulocyte count decreased [Unknown]
  - Pigmentation disorder [Unknown]
  - Hepatic function abnormal [Unknown]
  - Renal impairment [Unknown]
  - Diarrhoea [Unknown]
  - Thrombocytopenia [Unknown]
  - Palmar-plantar erythrodysaesthesia syndrome [Unknown]
  - Vomiting [Unknown]
  - Stomatitis [Unknown]
  - Leukopenia [Unknown]
